FAERS Safety Report 16849337 (Version 2)
Quarter: 2019Q3

REPORT INFORMATION
  Report Type: Spontaneous
  Country: BR (occurrence: BR)
  Receive Date: 20190925
  Receipt Date: 20190926
  Transmission Date: 20191005
  Serious: Yes (Other)
  Sender: FDA-Public Use
  Company Number: BR-ABBVIE-19P-020-2937677-00

PATIENT
  Age: 24 Year
  Sex: Male

DRUGS (15)
  1. DEPAKENE [Suspect]
     Active Substance: VALPROIC ACID
     Indication: FALL
     Dosage: DAILY DOSE 1000 MILLIGRAM, AFTERNOON/NIGHT; SPLITS/GRINDS THE TABLET SO HE WON^T CHOKE;
     Route: 048
  2. LAMITOR [Concomitant]
     Active Substance: LAMOTRIGINE
     Indication: MUSCULOSKELETAL STIFFNESS
  3. RIVOTRIL [Concomitant]
     Active Substance: CLONAZEPAM
     Indication: FALL
  4. DEPAKENE [Suspect]
     Active Substance: VALPROIC ACID
     Indication: TREMOR
  5. RIVOTRIL [Concomitant]
     Active Substance: CLONAZEPAM
     Indication: TREMOR
  6. TEGRETOL [Concomitant]
     Active Substance: CARBAMAZEPINE
     Indication: MUSCULOSKELETAL STIFFNESS
  7. LAMITOR [Concomitant]
     Active Substance: LAMOTRIGINE
     Indication: TREMOR
  8. TEGRETOL [Concomitant]
     Active Substance: CARBAMAZEPINE
     Indication: TREMOR
  9. LAMITOR [Concomitant]
     Active Substance: LAMOTRIGINE
     Indication: FALL
  10. RIVOTRIL [Concomitant]
     Active Substance: CLONAZEPAM
     Indication: MUSCULOSKELETAL STIFFNESS
     Dosage: WHENEVER HE HAS A CRISIS AN ADDITIONAL TABLET IS ADMINISTERED UNDER HIS TONGUE
  11. PANTOPRAZOLE [Concomitant]
     Active Substance: PANTOPRAZOLE
     Indication: GASTRIC DISORDER
  12. DEPAKENE [Suspect]
     Active Substance: VALPROIC ACID
     Indication: MUSCULOSKELETAL STIFFNESS
     Route: 048
  13. RANITIDINE. [Concomitant]
     Active Substance: RANITIDINE
     Indication: GASTRIC DISORDER
  14. VONAU [Concomitant]
     Active Substance: ONDANSETRON HYDROCHLORIDE
     Indication: NAUSEA
  15. TEGRETOL [Concomitant]
     Active Substance: CARBAMAZEPINE
     Indication: FALL

REACTIONS (10)
  - Gastrooesophageal reflux disease [Unknown]
  - Cerebral thrombosis [Unknown]
  - Fall [Unknown]
  - Tremor [Unknown]
  - Head injury [Unknown]
  - Malaise [Unknown]
  - Brain operation [Unknown]
  - Product use issue [Unknown]
  - Wrong technique in product usage process [Unknown]
  - Vomiting [Unknown]
